FAERS Safety Report 14042763 (Version 1)
Quarter: 2017Q4

REPORT INFORMATION
  Report Type: Spontaneous
  Country: US (occurrence: US)
  Receive Date: 20171004
  Receipt Date: 20171004
  Transmission Date: 20180321
  Serious: No
  Sender: FDA-Public Use
  Company Number: US-INDIVIOR LIMITED-INDV-096350-2016

PATIENT
  Age: 23 Year
  Sex: Female

DRUGS (2)
  1. SUBOXONE [Suspect]
     Active Substance: BUPRENORPHINE HYDROCHLORIDE\NALOXONE HYDROCHLORIDE
     Indication: DRUG USE DISORDER
     Dosage: 8 MG, ONCE
     Route: 060
     Dates: start: 20161103, end: 20161103
  2. SUBOXONE [Suspect]
     Active Substance: BUPRENORPHINE HYDROCHLORIDE\NALOXONE HYDROCHLORIDE
     Dosage: HALF OF THE FILM BY CUTTING, 4MG IN MORNING
     Route: 060
     Dates: start: 20161104, end: 20161104

REACTIONS (7)
  - Product preparation error [Recovered/Resolved]
  - Intentional underdose [Recovered/Resolved]
  - Hyperhidrosis [Recovering/Resolving]
  - Drug withdrawal syndrome [Recovering/Resolving]
  - Feeling abnormal [Recovering/Resolving]
  - Nausea [Recovering/Resolving]
  - Diarrhoea [Recovering/Resolving]

NARRATIVE: CASE EVENT DATE: 20161103
